FAERS Safety Report 6744765-2 (Version None)
Quarter: 2010Q2

REPORT INFORMATION
  Report Type: 
  Country: None (occurrence: None)
  Receive Date: 20100527
  Receipt Date: 20100514
  Transmission Date: 20101027
  Serious: Yes (Life-Threatening, Hospitalization)
  Sender: FDA-Public Use
  Company Number: ES-TYCO HEALTHCARE/MALLINCKRODT-T201001247

PATIENT

DRUGS (1)
  1. OPTIRAY 320 [Suspect]
     Indication: UROGRAM
     Dosage: 100 ML, SINGLE
     Route: 042
     Dates: start: 20100101, end: 20100101

REACTIONS (4)
  - ASTHENIA [None]
  - DYSPNOEA [None]
  - NAUSEA [None]
  - VOMITING [None]
